FAERS Safety Report 14007926 (Version 1)
Quarter: 2017Q3

REPORT INFORMATION
  Report Type: Spontaneous
  Country: CH (occurrence: CH)
  Receive Date: 20170925
  Receipt Date: 20170925
  Transmission Date: 20171128
  Serious: Yes (Life-Threatening)
  Sender: FDA-Public Use
  Company Number: CH-GLAXOSMITHKLINE-CH2017146040

PATIENT
  Age: 69 Year
  Sex: Female
  Weight: 57 kg

DRUGS (5)
  1. ZINACEF [Suspect]
     Active Substance: CEFUROXIME SODIUM
     Indication: ANTIBIOTIC PROPHYLAXIS
     Dosage: 3 G, UNK
     Route: 042
     Dates: start: 20170629, end: 20170629
  2. SUFENTA FORTE [Concomitant]
     Indication: ANALGESIC THERAPY
     Dosage: 1 DF, UNK
     Route: 042
     Dates: start: 20170629, end: 20170629
  3. CYKLOKAPRON [Concomitant]
     Active Substance: TRANEXAMIC ACID
     Indication: PRODUCT USED FOR UNKNOWN INDICATION
     Dosage: 2.25 MG, UNK
     Route: 042
     Dates: start: 20170629, end: 20170629
  4. NORADRENALIN [Concomitant]
     Active Substance: NOREPINEPHRINE\NOREPINEPHRINE BITARTRATE
     Indication: PRODUCT USED FOR UNKNOWN INDICATION
     Dosage: 1 DF, UNK
     Route: 042
     Dates: start: 20170629, end: 20170629
  5. PROTAMINE HYDROCHLORIDE [Suspect]
     Active Substance: PROTAMINE HYDROCHLORIDE
     Indication: HEPARIN NEUTRALISATION THERAPY
     Dosage: 30000 IU, UNK
     Route: 041
     Dates: start: 20170629, end: 20170629

REACTIONS (1)
  - Hypotension [Recovered/Resolved]

NARRATIVE: CASE EVENT DATE: 20170629
